FAERS Safety Report 14546775 (Version 1)
Quarter: 2018Q1

REPORT INFORMATION
  Report Type: Spontaneous
  Country: TR (occurrence: TR)
  Receive Date: 20180219
  Receipt Date: 20180219
  Transmission Date: 20180509
  Serious: Yes (Other)
  Sender: FDA-Public Use
  Company Number: TR-PFIZER INC-2018066214

PATIENT
  Age: 46 Year
  Sex: Male

DRUGS (8)
  1. METOPROLOL. [Concomitant]
     Active Substance: METOPROLOL
     Dosage: 20 MG, 2X/DAY
  2. KORDEXA [Concomitant]
     Active Substance: DEXAMETHASONE
     Dosage: 4 MG, 2X/DAY
  3. XALKORI [Suspect]
     Active Substance: CRIZOTINIB
     Indication: LUNG ADENOCARCINOMA
     Dosage: 250 MG, 2X/DAY
     Dates: start: 201512
  4. CORASPIN [Concomitant]
     Active Substance: ASPIRIN
     Dosage: 100 MG, 1X/DAY
  5. EPANUTIN /00017401/ [Concomitant]
     Active Substance: PHENYTOIN
     Dosage: 100 MG, 3X/DAY
  6. DEKORT /00016001/ [Concomitant]
     Dosage: 0.5 MG, 2X/DAY
  7. ATEROZ [Concomitant]
     Active Substance: ATORVASTATIN CALCIUM
     Dosage: UNK, 1X/DAY
  8. TEGRETOL [Concomitant]
     Active Substance: CARBAMAZEPINE
     Dosage: 200 MG, 1X/DAY

REACTIONS (6)
  - Neoplasm progression [Unknown]
  - Epilepsy [Unknown]
  - Nausea [Unknown]
  - Visual impairment [Unknown]
  - Headache [Recovered/Resolved]
  - Dizziness [Unknown]

NARRATIVE: CASE EVENT DATE: 20160425
